FAERS Safety Report 6061668-X (Version None)
Quarter: 2009Q1

REPORT INFORMATION
  Report Type: 
  Country: None (occurrence: None)
  Receive Date: 20090202
  Receipt Date: 20090129
  Transmission Date: 20090719
  Serious: Yes (Other)
  Sender: FDA-Public Use
  Company Number: B0556471A

PATIENT
  Age: 5 Year
  Sex: Female

DRUGS (3)
  1. RELENZA [Suspect]
     Indication: INFLUENZA
     Dosage: 10MG TWICE PER DAY
     Route: 055
     Dates: start: 20090122, end: 20090126
  2. ONON [Concomitant]
     Indication: ASTHMA
     Route: 048
  3. IPD [Concomitant]
     Indication: ASTHMA
     Route: 048

REACTIONS (1)
  - ASTHMA [None]
